FAERS Safety Report 17797311 (Version 1)
Quarter: 2020Q2

REPORT INFORMATION
  Report Type: Spontaneous
  Country: US (occurrence: US)
  Receive Date: 20200515
  Receipt Date: 20200515
  Transmission Date: 20200714
  Serious: Yes (Other)
  Sender: FDA-Public Use
  Company Number: None

PATIENT
  Age: 35 Year
  Sex: Female
  Weight: 85.4 kg

DRUGS (5)
  1. LEVETIRACETAM. [Concomitant]
     Active Substance: LEVETIRACETAM
  2. BUPIVACAINE. [Suspect]
     Active Substance: BUPIVACAINE
     Indication: SPINAL ANAESTHESIA
     Dosage: ?          OTHER FREQUENCY:ONCE;?
  3. MONTELUKAST [Concomitant]
     Active Substance: MONTELUKAST SODIUM
  4. GABAPENTIN. [Concomitant]
     Active Substance: GABAPENTIN
  5. INSULIN [Concomitant]
     Active Substance: INSULIN NOS

REACTIONS (4)
  - Product quality issue [None]
  - Drug ineffective [None]
  - Caesarean section [None]
  - Pain [None]
